FAERS Safety Report 4554272-3 (Version None)
Quarter: 2004Q4

REPORT INFORMATION
  Report Type: 
  Country: None (occurrence: None)
  Receive Date: 20041222
  Receipt Date: 20041013
  Transmission Date: 20050328
  Serious: No
  Sender: FDA-Public Use
  Company Number: 209639

PATIENT
  Age: 69 Year
  Sex: Male
  Weight: 106.6 kg

DRUGS (3)
  1. AVASTIN [Suspect]
     Indication: COLORECTAL CANCER METASTATIC
  2. FLUOROURACIL [Suspect]
     Indication: COLORECTAL CANCER METASTATIC
  3. PAREGORIC (PAREGORIC) [Concomitant]

REACTIONS (1)
  - DIARRHOEA [None]
